FAERS Safety Report 9409027 (Version 1)
Quarter: 2013Q1

REPORT INFORMATION
  Report Type: Spontaneous
  Country: RU (occurrence: None)
  Receive Date: 20130301
  Receipt Date: 20130301
  Transmission Date: 20140127
  Serious: Yes (Hospitalization)
  Sender: FDA-Public Use
  Company Number: 2013-0626

PATIENT
  Age: 60 Year
  Sex: Male

DRUGS (4)
  1. DYSPORT [Suspect]
     Indication: DYSTONIA
     Dosage: 500 UNITS, CYCLE
     Dates: start: 20111031, end: 20111031
  2. DYSPORT [Suspect]
     Indication: DYSTONIA
     Dosage: 500 UNITS, CYCLE
     Dates: start: 20111031, end: 20111031
  3. DYSPORT [Suspect]
     Indication: DYSTONIA
     Dosage: 500 UNITS, CYCLE
     Dates: start: 20111031, end: 20111031
  4. DYSPORT [Suspect]
     Indication: OFF LABEL USE
     Dosage: 500 UNITS, CYCLE
     Dates: start: 20111031, end: 20111031

REACTIONS (6)
  - Muscle atrophy [None]
  - Laryngeal disorder [None]
  - Dysphagia [None]
  - Weight decreased [None]
  - Dyspepsia [None]
  - Incorrect dose administered [None]
